FAERS Safety Report 8192743-1 (Version None)
Quarter: 2012Q1

REPORT INFORMATION
  Report Type: 
  Country: None (occurrence: None)
  Receive Date: 20120308
  Receipt Date: 20120305
  Transmission Date: 20120608
  Serious: No
  Sender: FDA-Public Use
  Company Number: US-PFIZER INC-2011131371

PATIENT
  Sex: Female
  Weight: 59 kg

DRUGS (2)
  1. ESTRING [Suspect]
     Indication: VULVOVAGINAL DRYNESS
     Dosage: UNK
     Dates: start: 20110701, end: 20111201
  2. LEVOTHYROXINE SODIUM [Concomitant]
     Indication: HYPOTHYROIDISM
     Dosage: 0.75 MG, 1X/DAY

REACTIONS (3)
  - BREAST TENDERNESS [None]
  - DRUG INEFFECTIVE [None]
  - BREAST PAIN [None]
